FAERS Safety Report 5221573-5 (Version None)
Quarter: 2007Q1

REPORT INFORMATION
  Report Type: 
  Country: None (occurrence: None)
  Receive Date: 20070127
  Receipt Date: 20070122
  Transmission Date: 20070707
  Serious: Yes (Hospitalization)
  Sender: FDA-Public Use
  Company Number: MX-ABBOTT-06P-107-0347448-00

PATIENT
  Sex: Male
  Weight: 60 kg

DRUGS (19)
  1. RITONAVIR SOFT GELATIN CAPSULES [Suspect]
     Indication: HIV INFECTION
     Route: 048
     Dates: start: 20060814, end: 20061004
  2. RITONAVIR SOFT GELATIN CAPSULES [Suspect]
     Dates: start: 20061005
  3. TMC125 [Concomitant]
     Indication: HIV INFECTION
     Route: 048
     Dates: start: 20060814, end: 20061004
  4. TMC125 [Concomitant]
     Dates: start: 20061005
  5. ABACAVIR SULFATE [Concomitant]
     Indication: HIV INFECTION
     Route: 048
     Dates: start: 20030301
  6. TMC114 [Concomitant]
     Indication: HIV INFECTION
     Route: 048
     Dates: start: 20060814, end: 20061004
  7. TMC114 [Concomitant]
     Dates: start: 20061005
  8. LAMIVUDINE [Concomitant]
     Indication: HIV INFECTION
     Route: 048
     Dates: start: 20030301
  9. BEZAFIBRATE [Concomitant]
     Indication: HYPERTRIGLYCERIDAEMIA
     Route: 048
  10. CLONAZEPAM [Concomitant]
     Indication: CEREBRAL TOXOPLASMOSIS
     Route: 048
  11. CLONAZEPAM [Concomitant]
     Route: 048
  12. VALPROATE MAGNESIUM [Concomitant]
     Indication: CONVULSION PROPHYLAXIS
     Route: 048
  13. VALPROATE MAGNESIUM [Concomitant]
     Indication: MUSCLE RIGIDITY
     Dates: start: 20060828
  14. VALPROATE MAGNESIUM [Concomitant]
     Dates: start: 20061002
  15. VALPROATE MAGNESIUM [Concomitant]
     Route: 048
     Dates: start: 20061005
  16. BACTRIM [Concomitant]
     Indication: ANTIBIOTIC PROPHYLAXIS
     Dates: start: 20060815
  17. LEVETIRACETAM [Concomitant]
     Indication: CONVULSION
     Route: 048
     Dates: start: 20061007
  18. LORATADINE [Concomitant]
     Indication: NASOPHARYNGITIS
     Dates: start: 20061126
  19. RANITIDINE [Concomitant]
     Indication: PROPHYLAXIS AGAINST GASTROINTESTINAL ULCER
     Dates: start: 20061016

REACTIONS (2)
  - IMMUNE RECONSTITUTION SYNDROME [None]
  - PARTIAL SEIZURES [None]
